FAERS Safety Report 15271841 (Version 8)
Quarter: 2018Q4

REPORT INFORMATION
  Report Type: Spontaneous
  Country: JP (occurrence: JP)
  Receive Date: 20180813
  Receipt Date: 20181123
  Transmission Date: 20190204
  Serious: No
  Sender: FDA-Public Use
  Company Number: PHJP2018JP014588

PATIENT
  Sex: Male

DRUGS (11)
  1. COUGHCODE N [Suspect]
     Active Substance: ACETAMINOPHEN\BROMISOVAL\DIHYDROCODEINE PHOSPHATE\DIPHENHYDRAMINE SALICYLATE\DYPHYLLINE\METHYLEPHEDRINE HYDROCHLORIDE, (+/-)-
     Indication: BRONCHITIS CHRONIC
     Dosage: 1 DF, TID
     Route: 048
     Dates: start: 201604, end: 20180725
  2. ALVESCO [Concomitant]
     Active Substance: CICLESONIDE
     Indication: EMPHYSEMA
     Dosage: 2 DF, BID
     Route: 055
     Dates: start: 201604
  3. EBASTINE [Concomitant]
     Active Substance: EBASTINE
     Indication: SEASONAL ALLERGY
     Dosage: 10 MG, QD
     Route: 048
     Dates: start: 201604
  4. TRAVATAN Z [Suspect]
     Active Substance: TRAVOPROST
     Indication: ANGLE CLOSURE GLAUCOMA
     Dosage: 1-2 GTT, UNK
     Route: 047
     Dates: start: 20130326
  5. ULTIBRO INHALATION CAPSULES [Suspect]
     Active Substance: GLYCOPYRRONIUM\INDACATEROL
     Indication: BRONCHITIS CHRONIC
  6. PATANOL [Suspect]
     Active Substance: OLOPATADINE HYDROCHLORIDE
     Indication: CONJUNCTIVITIS ALLERGIC
     Dosage: 2 GTT, QID
     Route: 047
     Dates: start: 20180516
  7. MUCOSOLVAN [Concomitant]
     Active Substance: AMBROXOL HYDROCHLORIDE
     Indication: BRONCHITIS CHRONIC
     Dosage: 15 MG, TID
     Route: 048
     Dates: start: 201604
  8. AMBROXOL HYDROCHLORIDE [Concomitant]
     Active Substance: AMBROXOL HYDROCHLORIDE
     Indication: BRONCHITIS CHRONIC
     Dosage: 15 MG, TID
     Route: 048
     Dates: start: 201604
  9. CLARITH [Concomitant]
     Active Substance: CLARITHROMYCIN
     Indication: BRONCHITIS CHRONIC
     Dosage: 200 MG, BID
     Route: 048
     Dates: start: 201604
  10. HYALEIN [Concomitant]
     Active Substance: HYALURONATE SODIUM
     Indication: DRY EYE
     Dosage: 2 GTT, UNK
     Route: 047
     Dates: start: 20140118
  11. ULTIBRO INHALATION CAPSULES [Suspect]
     Active Substance: GLYCOPYRRONIUM\INDACATEROL
     Indication: EMPHYSEMA
     Dosage: 1 DF, QD
     Route: 055
     Dates: start: 201604, end: 20180725

REACTIONS (3)
  - Emphysema [Unknown]
  - Condition aggravated [Unknown]
  - Contraindicated product administered [Unknown]
